FAERS Safety Report 24070759 (Version 1)
Quarter: 2024Q3

REPORT INFORMATION
  Report Type: Spontaneous
  Country: US (occurrence: US)
  Receive Date: 20240710
  Receipt Date: 20240710
  Transmission Date: 20241017
  Serious: No
  Sender: ROCHE
  Company Number: US-ROCHE-3397803

PATIENT
  Age: 57 Year
  Sex: Female
  Weight: 95.25 kg

DRUGS (1)
  1. PHESGO [Suspect]
     Active Substance: HYALURONIDASE-ZZXF\PERTUZUMAB\TRASTUZUMAB
     Indication: HER2 positive breast cancer
     Route: 065
     Dates: start: 202209, end: 202304

REACTIONS (3)
  - Cardiac disorder [Unknown]
  - Weight increased [Unknown]
  - Weight loss poor [Unknown]

NARRATIVE: CASE EVENT DATE: 20221201
